FAERS Safety Report 24046750 (Version 1)
Quarter: 2024Q3

REPORT INFORMATION
  Report Type: Spontaneous
  Country: US (occurrence: US)
  Receive Date: 20240703
  Receipt Date: 20240703
  Transmission Date: 20241016
  Serious: No
  Sender: BRISTOL MYERS SQUIBB
  Company Number: US-BRISTOL-MYERS SQUIBB COMPANY-2024-103488

PATIENT
  Age: 70 Year
  Sex: Male
  Weight: 60.33 kg

DRUGS (1)
  1. REVLIMID [Suspect]
     Active Substance: LENALIDOMIDE
     Indication: Plasma cell myeloma
     Dosage: 2 WKS ON,1 WK OFF?,REVLIMID DOSING 15 MG ON MONDAY, WEDNESDAY AND FRIDAY ON DAY 1-14 OF 21 DAY CYCLE
     Route: 048

REACTIONS (1)
  - Off label use [Unknown]
